FAERS Safety Report 5371682-5 (Version None)
Quarter: 2007Q2

REPORT INFORMATION
  Report Type: 
  Country: None (occurrence: None)
  Receive Date: 20070625
  Receipt Date: 20070615
  Transmission Date: 20071010
  Serious: Yes (Other)
  Sender: FDA-Public Use
  Company Number: 2007SP012063

PATIENT
  Age: 66 Year
  Sex: Male

DRUGS (13)
  1. NOXAFIL [Suspect]
     Indication: BRONCHOPULMONARY ASPERGILLOSIS
     Dosage: SEE IMAGE
     Dates: start: 20070530, end: 20070605
  2. NOXAFIL [Suspect]
     Indication: BRONCHOPULMONARY ASPERGILLOSIS
     Dosage: SEE IMAGE
     Dates: start: 20070101
  3. MIRTAZAPINE [Concomitant]
  4. ALLOPURINOL [Concomitant]
  5. ACETYLCYSTEINE [Concomitant]
  6. SPIRONOLACTONE [Concomitant]
  7. POTASSIUM CHLORIDE [Concomitant]
  8. IDEOS [Concomitant]
  9. PRAVASTATIN [Concomitant]
  10. FUROSEMIDE [Concomitant]
  11. COTRIM DS [Concomitant]
  12. TOBRAMYCIN [Concomitant]
  13. PANTOPRAZOLE SODIUM [Concomitant]

REACTIONS (1)
  - DEAFNESS NEUROSENSORY [None]
